FAERS Safety Report 9540315 (Version 3)
Quarter: 2015Q2

REPORT INFORMATION
  Report Type: Spontaneous
  Country: IT (occurrence: IT)
  Receive Date: 20130917
  Receipt Date: 20150612
  Transmission Date: 20150821
  Serious: Yes (Other)
  Sender: FDA-Public Use
  Company Number: 1887875

PATIENT
  Age: 75 Year
  Sex: Female
  Weight: 45 kg

DRUGS (2)
  1. PACLITAXEL. [Suspect]
     Active Substance: PACLITAXEL
  2. PACLITAXEL. [Suspect]
     Active Substance: PACLITAXEL
     Indication: OVARIAN CANCER
     Route: 042
     Dates: start: 20130528, end: 20130528

REACTIONS (3)
  - Hyperhidrosis [Recovered/Resolved]
  - Rash [Recovered/Resolved]
  - Laryngospasm [Recovered/Resolved]

NARRATIVE: CASE EVENT DATE: 20130528
